FAERS Safety Report 24758892 (Version 2)
Quarter: 2025Q4

REPORT INFORMATION
  Report Type: Spontaneous
  Country: GB (occurrence: GB)
  Receive Date: 20241220
  Receipt Date: 20251106
  Transmission Date: 20260118
  Serious: Yes (Disabling, Other)
  Sender: ACCORD
  Company Number: GB-Accord-460201

PATIENT
  Age: 75 Year
  Sex: Male

DRUGS (4)
  1. FLUOROURACIL [Suspect]
     Active Substance: FLUOROURACIL
     Indication: Bladder cancer
  2. NEOMYCIN [Concomitant]
     Active Substance: NEOMYCIN
  3. METFORMIN [Concomitant]
     Active Substance: METFORMIN HYDROCHLORIDE
     Indication: Type 2 diabetes mellitus
  4. RAMIPRIL [Concomitant]
     Active Substance: RAMIPRIL
     Indication: Essential hypertension

REACTIONS (2)
  - Optic ischaemic neuropathy [Unknown]
  - Off label use [Unknown]
